FAERS Safety Report 9978012 (Version 1)
Quarter: 2014Q1

REPORT INFORMATION
  Report Type: Spontaneous
  Country: US (occurrence: US)
  Receive Date: 20140306
  Receipt Date: 20140306
  Transmission Date: 20141002
  Serious: No
  Sender: FDA-Public Use
  Company Number: US-ABBVIE-13P-163-1059885-00

PATIENT
  Sex: Female

DRUGS (3)
  1. LUPRON DEPOT 11.25 MG [Suspect]
     Indication: PRODUCT USED FOR UNKNOWN INDICATION
  2. LUPRON DEPOT 3.75 MG [Suspect]
     Indication: PRODUCT USED FOR UNKNOWN INDICATION
  3. LUPRON DEPOT 7.5 MG [Suspect]
     Indication: PRODUCT USED FOR UNKNOWN INDICATION

REACTIONS (2)
  - Incorrect drug dosage form administered [Recovered/Resolved]
  - Incorrect drug dosage form administered [Recovered/Resolved]
